FAERS Safety Report 13210917 (Version 1)
Quarter: 2017Q1

REPORT INFORMATION
  Report Type: Spontaneous
  Country: US (occurrence: US)
  Receive Date: 20170209
  Receipt Date: 20170209
  Transmission Date: 20170428
  Serious: No
  Sender: FDA-Public Use
  Company Number: None

PATIENT
  Age: 58 Year
  Sex: Female
  Weight: 78.75 kg

DRUGS (14)
  1. INVEGA INTRINSIC [Concomitant]
  2. CARVEDILOL. [Concomitant]
     Active Substance: CARVEDILOL
  3. ESZOPICLONE. [Suspect]
     Active Substance: ESZOPICLONE
     Indication: INSOMNIA
     Dosage: ?          QUANTITY:1 TABLET(S);?
     Route: 048
     Dates: start: 20170202, end: 20170206
  4. CETIRIZINE [Concomitant]
     Active Substance: CETIRIZINE HYDROCHLORIDE
  5. SENNOSIDES. [Concomitant]
     Active Substance: SENNOSIDES
  6. ASPIRIN. [Concomitant]
     Active Substance: ASPIRIN
  7. DOCUSATE [Concomitant]
     Active Substance: DOCUSATE
  8. HAIR, SKIN + NAILS MULTIVITAMIN [Concomitant]
  9. MORPHINE [Concomitant]
     Active Substance: MORPHINE
  10. BACLOFEN. [Concomitant]
     Active Substance: BACLOFEN
  11. PRENATAL VITAMINS [Concomitant]
     Active Substance: VITAMINS
  12. VITAMIN D3 [Concomitant]
     Active Substance: CHOLECALCIFEROL
  13. ATORVASTATIN [Concomitant]
     Active Substance: ATORVASTATIN
  14. AMITRYPTYLINE [Concomitant]
     Active Substance: AMITRIPTYLINE

REACTIONS (1)
  - Abnormal dreams [None]

NARRATIVE: CASE EVENT DATE: 20170204
